FAERS Safety Report 6361434-1 (Version None)
Quarter: 2009Q3

REPORT INFORMATION
  Report Type: 
  Country: None (occurrence: None)
  Receive Date: 20090916
  Receipt Date: 20090916
  Transmission Date: 20100115
  Serious: Yes (Disabling)
  Sender: FDA-Public Use
  Company Number: None

PATIENT
  Age: 59 Year
  Sex: Male
  Weight: 78.4723 kg

DRUGS (1)
  1. WELLBUTRIN [Suspect]
     Dosage: 75 MG TID PO
     Route: 048
     Dates: start: 20090817, end: 20090915

REACTIONS (3)
  - DEPRESSION [None]
  - PRODUCT SUBSTITUTION ISSUE [None]
  - THERAPEUTIC RESPONSE DECREASED [None]
